FAERS Safety Report 11307898 (Version 1)
Quarter: 2015Q3

REPORT INFORMATION
  Report Type: Spontaneous
  Country: BE (occurrence: BE)
  Receive Date: 20150724
  Receipt Date: 20150724
  Transmission Date: 20151125
  Serious: Yes (Hospitalization, Other)
  Sender: FDA-Public Use
  Company Number: BE-PAR PHARMACEUTICAL, INC-2015SCPR014154

PATIENT

DRUGS (1)
  1. AMLODIPINE BESYLATE + VALSARTAN [Suspect]
     Active Substance: AMLODIPINE BESYLATE\VALSARTAN
     Dosage: 480/3680 MG, UNKNOWN
     Route: 048

REACTIONS (12)
  - Distributive shock [Recovered/Resolved]
  - Electrocardiogram QT prolonged [Recovered/Resolved]
  - Pleural effusion [Recovered/Resolved]
  - Vasoplegia syndrome [Recovered/Resolved]
  - Hypoxia [Recovered/Resolved]
  - Vascular resistance systemic decreased [Recovered/Resolved]
  - Metabolic acidosis [Recovered/Resolved]
  - Acute kidney injury [Recovered/Resolved]
  - Cardiac index increased [Recovered/Resolved]
  - Intentional overdose [Unknown]
  - Hyperglycaemia [Recovered/Resolved]
  - Hyperdynamic left ventricle [Recovered/Resolved]
